FAERS Safety Report 9002211 (Version 7)
Quarter: 2014Q2

REPORT INFORMATION
  Report Type: Spontaneous
  Country: US (occurrence: US)
  Receive Date: 20130107
  Receipt Date: 20140408
  Transmission Date: 20141212
  Serious: Yes (Hospitalization, Disabling, Other)
  Sender: FDA-Public Use
  Company Number: US-MERCK-1301USA000940

PATIENT
  Sex: Female
  Weight: 64.4 kg

DRUGS (17)
  1. FOSAMAX [Suspect]
     Indication: OSTEOPOROSIS
     Dosage: 70 MG, UNK
     Route: 048
     Dates: start: 200105
  2. ALENDRONATE SODIUM [Suspect]
     Indication: OSTEOPOROSIS
     Dosage: 70 MG, UNK
     Dates: start: 200803
  3. OS-CAL (CALCIUM (UNSPECIFIED) (+) VITAMIN D (UNSPECIFIED)) [Concomitant]
     Indication: OSTEOPOROSIS
  4. MIACALCIN [Concomitant]
     Indication: OSTEOPOROSIS
  5. CALCIUM (UNSPECIFIED) (+) VITAMIN D (UNSPECIFIED) [Concomitant]
     Dosage: 1 UNK, QD
  6. PREVACID [Concomitant]
     Indication: HYPERCHLORHYDRIA
     Dosage: UNK
     Dates: start: 2001, end: 2005
  7. NASONEX [Concomitant]
     Indication: HYPERSENSITIVITY
     Dosage: UNK
     Dates: start: 1998
  8. FEXOFENADINE HYDROCHLORIDE [Concomitant]
     Indication: HYPERSENSITIVITY
     Dosage: UNK
     Dates: start: 200702, end: 201110
  9. NASOCORT [Concomitant]
     Indication: HYPERSENSITIVITY
     Dosage: UNK
     Dates: start: 2002, end: 200701
  10. ZYRTEC [Concomitant]
     Indication: HYPERSENSITIVITY
     Dosage: UNK
     Dates: start: 200601, end: 200701
  11. LORATADINE [Concomitant]
     Indication: HYPERSENSITIVITY
     Dosage: UNK
     Dates: start: 200511, end: 200601
  12. PRILOSEC [Concomitant]
  13. NEXIUM [Concomitant]
  14. PROTONIX [Concomitant]
  15. OMEPRAZOLE [Concomitant]
  16. VITAMINS (UNSPECIFIED) [Concomitant]
  17. CORTICOSTEROIDS (UNSPECIFIED) [Concomitant]

REACTIONS (76)
  - Femur fracture [Recovered/Resolved]
  - Intramedullary rod insertion [Not Recovered/Not Resolved]
  - Low turnover osteopathy [Not Recovered/Not Resolved]
  - Osteoporosis [Not Recovered/Not Resolved]
  - Stress fracture [Not Recovered/Not Resolved]
  - Femur fracture [Not Recovered/Not Resolved]
  - Fracture [Not Recovered/Not Resolved]
  - Catheterisation cardiac [Unknown]
  - Knee arthroplasty [Unknown]
  - Hernia [Unknown]
  - Myocardial infarction [Unknown]
  - Adverse event [Unknown]
  - Trigger finger [Unknown]
  - Carpal tunnel syndrome [Unknown]
  - Knee arthroplasty [Unknown]
  - Atrial fibrillation [Unknown]
  - Pleural effusion [Unknown]
  - Anaemia postoperative [Unknown]
  - Carpal tunnel syndrome [Unknown]
  - Cardiomegaly [Unknown]
  - Hip arthroplasty [Unknown]
  - Arthralgia [Unknown]
  - Infection [Unknown]
  - Infection [Unknown]
  - Infection [Unknown]
  - Infection [Unknown]
  - Infection [Unknown]
  - Infection [Unknown]
  - Infection [Unknown]
  - Infection [Unknown]
  - Inflammation [Unknown]
  - Inflammation [Unknown]
  - Inflammation [Unknown]
  - Inflammation [Unknown]
  - Anxiety [Unknown]
  - Restless legs syndrome [Unknown]
  - Restless legs syndrome [Unknown]
  - Pain [Unknown]
  - Pain [Unknown]
  - Pain [Unknown]
  - Chest pain [Unknown]
  - Hyperlipidaemia [Unknown]
  - Nasopharyngitis [Unknown]
  - Nasopharyngitis [Unknown]
  - Hypertension [Unknown]
  - Osteoarthritis [Unknown]
  - Dysthymic disorder [Unknown]
  - Arthritis [Unknown]
  - Osteopenia [Unknown]
  - Pulmonary hypertension [Unknown]
  - Mitral valve incompetence [Unknown]
  - Osteoarthritis [Unknown]
  - Fall [Unknown]
  - Extrasystoles [Unknown]
  - Depression [Unknown]
  - Aortic aneurysm [Unknown]
  - Herpes zoster [Unknown]
  - Ear pain [Unknown]
  - Haemorrhoids [Unknown]
  - Kyphosis [Unknown]
  - Tricuspid valve incompetence [Unknown]
  - Scoliosis [Unknown]
  - Cardiac murmur [Unknown]
  - Aortic valve disease [Unknown]
  - Postoperative heterotopic calcification [Unknown]
  - Insomnia [Unknown]
  - Nocturia [Unknown]
  - Osteoarthritis [Unknown]
  - Arthritis [Unknown]
  - Ligament rupture [Unknown]
  - Joint injury [Unknown]
  - Arthralgia [Unknown]
  - Back pain [Not Recovered/Not Resolved]
  - Oedema peripheral [Not Recovered/Not Resolved]
  - Constipation [Unknown]
  - Constipation [Unknown]
